FAERS Safety Report 8833840 (Version 1)
Quarter: 2012Q4

REPORT INFORMATION
  Report Type: 
  Country: US (occurrence: US)
  Receive Date: 20121011
  Receipt Date: 20121011
  Transmission Date: 20130627
  Serious: No
  Sender: FDA-Public Use
  Company Number: US-009507513-2012SP028938

PATIENT
  Sex: Female

DRUGS (3)
  1. PROVENTIL [Suspect]
     Indication: ASTHMA
     Dosage: 2 DF, prn
     Route: 055
     Dates: end: 20120525
  2. PROVENTIL [Suspect]
     Dosage: 2 DF, prn
     Route: 055
     Dates: end: 20120525
  3. PROVENTIL [Suspect]
     Dosage: 2 DF, prn
     Route: 055
     Dates: end: 20120525

REACTIONS (2)
  - Dyspnoea [Recovering/Resolving]
  - Asthma [Recovering/Resolving]
